FAERS Safety Report 18727849 (Version 3)
Quarter: 2022Q4

REPORT INFORMATION
  Report Type: Spontaneous
  Country: US (occurrence: US)
  Receive Date: 20210111
  Receipt Date: 20221028
  Transmission Date: 20230113
  Serious: No
  Sender: FDA-Public Use
  Company Number: US-PFIZER INC-2021014695

PATIENT
  Age: 66 Year
  Sex: Female

DRUGS (1)
  1. METHOTREXATE SODIUM [Suspect]
     Active Substance: METHOTREXATE SODIUM
     Indication: Arthropathy
     Dosage: UNK
     Route: 058

REACTIONS (5)
  - Off label use [Unknown]
  - Drug hypersensitivity [Unknown]
  - Nausea [Unknown]
  - Fatigue [Unknown]
  - Drug intolerance [Unknown]
